FAERS Safety Report 9909644 (Version 1)
Quarter: 2014Q1

REPORT INFORMATION
  Report Type: Spontaneous
  Country: FR (occurrence: FR)
  Receive Date: 20140219
  Receipt Date: 20140219
  Transmission Date: 20141002
  Serious: Yes (Other)
  Sender: FDA-Public Use
  Company Number: FR-GLAXOSMITHKLINE-B0968452A

PATIENT
  Sex: Male

DRUGS (2)
  1. NARAMIG [Suspect]
     Indication: MIGRAINE
     Route: 048
     Dates: start: 201402
  2. CODOLIPRANE [Suspect]
     Indication: MIGRAINE
     Route: 048
     Dates: start: 201402

REACTIONS (3)
  - Feeling drunk [Recovered/Resolved]
  - Delirium [Recovered/Resolved]
  - Drug interaction [Unknown]
